FAERS Safety Report 18943623 (Version 1)
Quarter: 2021Q1

REPORT INFORMATION
  Report Type: Report from Study
  Country: None (occurrence: US)
  Receive Date: 20210226
  Receipt Date: 20210226
  Transmission Date: 20210420
  Serious: Yes (Death, Hospitalization, Other)
  Sender: FDA-Public Use
  Company Number: US-ABBVIE-21K-163-3769460-00

PATIENT
  Age: 56 Year
  Sex: Female

DRUGS (1)
  1. HUMIRA [Suspect]
     Active Substance: ADALIMUMAB
     Indication: COLITIS ULCERATIVE
     Route: 058
     Dates: start: 202010, end: 20210129

REACTIONS (9)
  - Respiratory failure [Fatal]
  - Urosepsis [Fatal]
  - Septic shock [Fatal]
  - Unresponsive to stimuli [Not Recovered/Not Resolved]
  - Lactic acidosis [Fatal]
  - Ammonia increased [Not Recovered/Not Resolved]
  - Acute kidney injury [Fatal]
  - Urinary tract infection [Fatal]
  - Nonalcoholic fatty liver disease [Not Recovered/Not Resolved]

NARRATIVE: CASE EVENT DATE: 20210101
